FAERS Safety Report 5085182-3 (Version None)
Quarter: 2006Q3

REPORT INFORMATION
  Report Type: 
  Country: None (occurrence: None)
  Receive Date: 20060822
  Receipt Date: 20060811
  Transmission Date: 20061208
  Serious: Yes (Hospitalization)
  Sender: FDA-Public Use
  Company Number: DE-ABBOTT-06P-062-0340280-00

PATIENT
  Sex: Female
  Weight: 3.2 kg

DRUGS (4)
  1. ERGENYL CHRONO TABLETS [Suspect]
     Indication: DRUG EXPOSURE DURING PREGNANCY
  2. ERGENYL CHRONO TABLETS [Suspect]
  3. PHYTOMENADIONE [Concomitant]
     Indication: DRUG USE FOR UNKNOWN INDICATION
     Route: 048
     Dates: start: 20060515
  4. PHYTOMENADIONE [Concomitant]
     Route: 048
     Dates: start: 20060517

REACTIONS (9)
  - AGITATION [None]
  - BLOOD CALCIUM DECREASED [None]
  - CONGENITAL NOSE MALFORMATION [None]
  - DRUG WITHDRAWAL SYNDROME NEONATAL [None]
  - DYSMORPHISM [None]
  - HEAD CIRCUMFERENCE ABNORMAL [None]
  - HYPERTONIA [None]
  - LOW SET EARS [None]
  - SEPSIS NEONATAL [None]
